FAERS Safety Report 5196865-9 (Version None)
Quarter: 2007Q1

REPORT INFORMATION
  Report Type: 
  Country: None (occurrence: None)
  Receive Date: 20070103
  Receipt Date: 20061221
  Transmission Date: 20070707
  Serious: Yes (Other)
  Sender: FDA-Public Use
  Company Number: US-BRISTOL-MYERS SQUIBB COMPANY-13623079

PATIENT
  Sex: Female

DRUGS (2)
  1. PRAVACHOL [Suspect]
     Indication: BLOOD CHOLESTEROL INCREASED
  2. ALEVE [Suspect]
     Indication: ARTHRITIS
     Route: 048
     Dates: start: 20060801

REACTIONS (2)
  - HYPOACUSIS [None]
  - MIDDLE EAR EFFUSION [None]
